FAERS Safety Report 6611923-7 (Version None)
Quarter: 2010Q1

REPORT INFORMATION
  Report Type: 
  Country: None (occurrence: None)
  Receive Date: 20100303
  Receipt Date: 20100216
  Transmission Date: 20100710
  Serious: Yes (Hospitalization)
  Sender: FDA-Public Use
  Company Number: SI-JNJFOC-20091203308

PATIENT
  Age: 4 Year
  Sex: Female

DRUGS (1)
  1. TRAMADOL HYDROCHLORIDE [Suspect]
     Indication: ACCIDENTAL EXPOSURE
     Route: 048

REACTIONS (11)
  - ACCIDENTAL DRUG INTAKE BY CHILD [None]
  - COMA [None]
  - CYANOSIS [None]
  - GRAND MAL CONVULSION [None]
  - HALLUCINATION [None]
  - OPISTHOTONUS [None]
  - PYREXIA [None]
  - RESPIRATORY ACIDOSIS [None]
  - RESPIRATORY DEPRESSION [None]
  - TACHYCARDIA [None]
  - TREMOR [None]
